FAERS Safety Report 7488699-7 (Version None)
Quarter: 2011Q2

REPORT INFORMATION
  Report Type: 
  Country: None (occurrence: None)
  Receive Date: 20110518
  Receipt Date: 20110510
  Transmission Date: 20111010
  Serious: Yes (Other)
  Sender: FDA-Public Use
  Company Number: B0719707A

PATIENT
  Age: 35 Year
  Sex: Male

DRUGS (3)
  1. DAPSONE [Concomitant]
  2. EFAVIRENZ [Concomitant]
  3. COMBIVIR [Suspect]
     Indication: RETROVIRAL INFECTION
     Dosage: 2UNIT PER DAY
     Route: 048

REACTIONS (2)
  - METABOLIC ACIDOSIS [None]
  - ANAEMIA [None]
